FAERS Safety Report 23843171 (Version 1)
Quarter: 2024Q2

REPORT INFORMATION
  Report Type: Spontaneous
  Country: IL (occurrence: IL)
  Receive Date: 20240510
  Receipt Date: 20240510
  Transmission Date: 20240716
  Serious: Yes (Other)
  Sender: FDA-Public Use
  Company Number: IL-GENEYORK-2024PPLIT00036

PATIENT
  Age: 13 Year
  Sex: Male

DRUGS (3)
  1. PREDNISONE [Suspect]
     Active Substance: PREDNISONE
     Indication: Combined immunodeficiency
     Dosage: CHRONIC COURSE
     Route: 065
  2. MYCOPHENOLATE MOFETIL [Concomitant]
     Active Substance: MYCOPHENOLATE MOFETIL
     Indication: Combined immunodeficiency
     Route: 065
  3. Immunoglobulin [Concomitant]
     Indication: Combined immunodeficiency
     Route: 042

REACTIONS (5)
  - Retinal detachment [Unknown]
  - Cataract [Unknown]
  - Growth retardation [Unknown]
  - Central obesity [Unknown]
  - Hypertension [Unknown]
